FAERS Safety Report 13214136 (Version 3)
Quarter: 2017Q2

REPORT INFORMATION
  Report Type: Spontaneous
  Country: FR (occurrence: FR)
  Receive Date: 20170210
  Receipt Date: 20170427
  Transmission Date: 20170830
  Serious: Yes (Hospitalization, Other)
  Sender: FDA-Public Use
  Company Number: FR-PFIZER INC-2017055913

PATIENT
  Age: 42 Month
  Sex: Male

DRUGS (1)
  1. LORAZEPAM. [Suspect]
     Active Substance: LORAZEPAM
     Dosage: UNK

REACTIONS (5)
  - Accidental exposure to product by child [Unknown]
  - Accidental overdose [Unknown]
  - Poisoning [Unknown]
  - Depressed level of consciousness [Unknown]
  - Dyspnoea [Unknown]
